FAERS Safety Report 17128562 (Version 1)
Quarter: 2019Q4

REPORT INFORMATION
  Report Type: Spontaneous
  Country: US (occurrence: US)
  Receive Date: 20191206
  Receipt Date: 20191206
  Transmission Date: 20200122
  Serious: Yes (Other)
  Sender: FDA-Public Use
  Company Number: None

PATIENT
  Age: 68 Year
  Sex: Female
  Weight: 66.6 kg

DRUGS (5)
  1. MULTI-VITAMIN WITH OMEGA-3 [Concomitant]
  2. PROBIOTIC [Concomitant]
     Active Substance: PROBIOTICS NOS
  3. EZETIMIBE (ZETIA) [Concomitant]
  4. VITAMIN D3 [Concomitant]
     Active Substance: CHOLECALCIFEROL
  5. CLINDAMYCIN 150 MG [Suspect]
     Active Substance: CLINDAMYCIN
     Indication: INFECTION PROPHYLAXIS
     Dosage: ?          QUANTITY:28 CAPSULE(S);?
     Route: 048
     Dates: start: 20190822, end: 20191109

REACTIONS (3)
  - Rash papular [None]
  - Rash pruritic [None]
  - Haematochezia [None]

NARRATIVE: CASE EVENT DATE: 20190829
